FAERS Safety Report 9293091 (Version 1)
Quarter: 2013Q2

REPORT INFORMATION
  Report Type: Spontaneous
  Country: US (occurrence: None)
  Receive Date: 20130515
  Receipt Date: 20130515
  Transmission Date: 20140414
  Serious: No
  Sender: FDA-Public Use
  Company Number: None

PATIENT
  Sex: Male
  Weight: 49.9 kg

DRUGS (1)
  1. EXJADE [Suspect]
     Indication: IRON OVERLOAD
     Route: 048
     Dates: start: 20120709

REACTIONS (1)
  - Rash [None]
